FAERS Safety Report 24939064 (Version 1)
Quarter: 2025Q1

REPORT INFORMATION
  Report Type: Spontaneous
  Country: JP (occurrence: JP)
  Receive Date: 20250206
  Receipt Date: 20250206
  Transmission Date: 20250409
  Serious: Yes (Other)
  Sender: MERCK
  Company Number: JP-MSD-M2025-00679

PATIENT
  Age: 6 Decade
  Sex: Female
  Weight: 53 kg

DRUGS (3)
  1. KEYTRUDA [Suspect]
     Active Substance: PEMBROLIZUMAB
     Indication: Oesophageal carcinoma
     Dosage: 200 MILLIGRAM, Q3W
     Route: 041
     Dates: start: 20210211, end: 20211025
  2. CISPLATIN [Concomitant]
     Active Substance: CISPLATIN
     Indication: Oesophageal carcinoma
     Dosage: 80 MILLIGRAM/SQ. METER, Q3W
     Route: 041
     Dates: start: 20210211, end: 20210824
  3. FLUOROURACIL [Concomitant]
     Active Substance: FLUOROURACIL
     Indication: Oesophageal carcinoma
     Route: 041
     Dates: start: 20210211, end: 20210828

REACTIONS (7)
  - Immune-mediated hypophysitis [Recovering/Resolving]
  - Immune-mediated dermatitis [Recovered/Resolved]
  - Hyperglycaemia [Recovering/Resolving]
  - Increased appetite [Not Recovered/Not Resolved]
  - Hypersensitivity [Unknown]
  - Weight increased [Recovering/Resolving]
  - Proteinuria [Recovering/Resolving]

NARRATIVE: CASE EVENT DATE: 20210901
